APPROVED DRUG PRODUCT: MORPHINE SULFATE (AUTOINJECTOR)
Active Ingredient: MORPHINE SULFATE
Strength: 10MG/0.7ML (10MG/0.7ML)
Dosage Form/Route: SOLUTION;INTRAMUSCULAR
Application: N019999 | Product #001
Applicant: MERIDIAN MEDICAL TECHNOLOGIES INC
Approved: Jul 12, 1990 | RLD: Yes | RS: No | Type: DISCN